FAERS Safety Report 14904222 (Version 1)
Quarter: 2018Q2

REPORT INFORMATION
  Report Type: Report from Study
  Country: None (occurrence: DE)
  Receive Date: 20180516
  Receipt Date: 20180516
  Transmission Date: 20180711
  Serious: Yes (Other)
  Sender: FDA-Public Use
  Company Number: DE-ABBVIE-18K-062-2355925-00

PATIENT
  Age: 11 Year
  Sex: Male
  Weight: 42 kg

DRUGS (1)
  1. HUMIRA [Suspect]
     Active Substance: ADALIMUMAB
     Indication: CROHN^S DISEASE
     Route: 058
     Dates: start: 20170711

REACTIONS (6)
  - Rash [Not Recovered/Not Resolved]
  - Erythema [Unknown]
  - Psoriasis [Unknown]
  - Lymphadenopathy [Not Recovered/Not Resolved]
  - Granuloma [Unknown]
  - Inflammation [Unknown]

NARRATIVE: CASE EVENT DATE: 201803
